FAERS Safety Report 5973021-5 (Version None)
Quarter: 2008Q4

REPORT INFORMATION
  Report Type: 
  Country: None (occurrence: None)
  Receive Date: 20081126
  Receipt Date: 20081126
  Transmission Date: 20090506
  Serious: Yes (Hospitalization)
  Sender: FDA-Public Use
  Company Number: None

PATIENT
  Sex: Male
  Weight: 72 kg

DRUGS (2)
  1. NAFCILLIN SODIUM [Suspect]
     Indication: STAPHYLOCOCCAL BACTERAEMIA
     Dosage: 2GM Q4H IV
     Route: 042
     Dates: start: 20081025, end: 20081027
  2. NAFCILLIN SODIUM [Suspect]
     Indication: STAPHYLOCOCCAL BACTERAEMIA
     Dosage: 2GM Q4H IV
     Route: 042
     Dates: start: 20081104, end: 20081106

REACTIONS (1)
  - BLOOD BILIRUBIN INCREASED [None]
